FAERS Safety Report 6464290-6 (Version None)
Quarter: 2009Q4

REPORT INFORMATION
  Report Type: 
  Country: None (occurrence: None)
  Receive Date: 20091130
  Receipt Date: 20091130
  Transmission Date: 20100525
  Serious: Yes (Life-Threatening, Hospitalization)
  Sender: FDA-Public Use
  Company Number: None

PATIENT
  Age: 35 Year
  Sex: Male
  Weight: 76 kg

DRUGS (14)
  1. VORICONAZOLE [Suspect]
     Indication: ASPERGILLOSIS
     Dosage: 200 MG, 2X/DAY, INTRAVENOUS;
     Route: 042
     Dates: start: 20091103, end: 20091116
  2. VORICONAZOLE [Suspect]
     Indication: ASPERGILLOSIS
     Dosage: 200 MG, 2X/DAY, INTRAVENOUS;
     Route: 042
     Dates: start: 20091117, end: 20091122
  3. ANIDULAFUNGIN; PLACEBO (CODE NOT BROKEN) [Suspect]
     Indication: ASPERGILLOSIS
     Dosage: 100 MG, 1X/DAY, INTERVENOUS
     Route: 042
     Dates: start: 20091103, end: 20091123
  4. LINEZOLID [Concomitant]
  5. ACYCLOVIR [Concomitant]
  6. CYCLOSPORINE [Concomitant]
  7. PIPERACILLIN/TAZOBACTAM (PIPERACILLIN, TAZOBACTAM) [Concomitant]
  8. FOSCAVIR [Concomitant]
  9. ALIZAPRIDE HYDROCHLORIDE (ALIZAPRIDE HYDROCHLORIDE) [Concomitant]
  10. LEVOXACIN (LEVOFLOXACIN) [Concomitant]
  11. NYSTATIN [Concomitant]
  12. DOMPERIDONE (DOMPERIDONE) [Concomitant]
  13. ALL OTHER THERAPEUTIC PRODUCTS (ALL OTHER THERAPEUTIC PRODUCTS) [Concomitant]
  14. VORICONAZOLE [Suspect]
     Dosage: 200MG 2X/DAY, ORAL
     Route: 048
     Dates: start: 20091117, end: 20091122

REACTIONS (2)
  - EPILEPSY [None]
  - PARTIAL SEIZURES [None]
